FAERS Safety Report 23041436 (Version 1)
Quarter: 2023Q4

REPORT INFORMATION
  Report Type: Spontaneous
  Country: CA (occurrence: CA)
  Receive Date: 20231007
  Receipt Date: 20231007
  Transmission Date: 20240110
  Serious: Yes (Death, Other)
  Sender: FDA-Public Use
  Company Number: CA-002147023-NVSC2023CA090978

PATIENT
  Age: 78 Year
  Sex: Female

DRUGS (15)
  1. CYCLOSPORINE [Suspect]
     Active Substance: CYCLOSPORINE
     Indication: Aplastic anaemia
     Dosage: UNK
     Route: 065
  2. NEORAL [Suspect]
     Active Substance: CYCLOSPORINE
     Indication: Product used for unknown indication
     Dosage: 4 DOSAGE FORM, BID
     Route: 048
  3. ELTROMBOPAG OLAMINE [Suspect]
     Active Substance: ELTROMBOPAG OLAMINE
     Indication: Aplastic anaemia
     Dosage: UNK
     Route: 048
     Dates: start: 20230510, end: 20230515
  4. ATIVAN [Concomitant]
     Active Substance: LORAZEPAM
     Indication: Product used for unknown indication
     Dosage: 1 DOSAGE FORM, QD (IF NEEDED FOR  SEDATION., DISP: 30 TABLET, RFL: 1)
     Route: 048
  5. CALCIUM [Concomitant]
     Active Substance: CALCIUM
     Indication: Product used for unknown indication
     Dosage: UNK
     Route: 065
  6. AMOXICILLIN\CLAVULANATE POTASSIUM [Concomitant]
     Active Substance: AMOXICILLIN\CLAVULANATE POTASSIUM
     Indication: Product used for unknown indication
     Dosage: 1 DOSAGE FORM, BID (DISP: 28 TABLET, RFL: 0)
     Route: 048
     Dates: start: 20230331, end: 20230414
  7. CYKLOKAPRON [Concomitant]
     Active Substance: TRANEXAMIC ACID
     Indication: Product used for unknown indication
     Dosage: 2 DOSAGE FORM, TID (1000 MG) (DISP: 100 TABLET, RFL: 1)
     Route: 048
  8. FOLVITE [Concomitant]
     Active Substance: FOLIC ACID
     Indication: Product used for unknown indication
     Dosage: 1 DOSAGE FORM, QD (DISP:  60 TABLET, RFL: 2)
     Route: 048
  9. MAGNESIUM [Concomitant]
     Active Substance: MAGNESIUM
     Indication: Product used for unknown indication
     Dosage: 1 DOSAGE FORM, QD (IF NEEDED., DISP: RFL)
     Route: 048
  10. METOCLOPRAMIDE HYDROCHLORIDE [Concomitant]
     Active Substance: METOCLOPRAMIDE HYDROCHLORIDE
     Indication: Nausea
     Dosage: 2 DOSAGE FORM (20 MG) (4 TIMES A DAY IF NEEDED (NAUSEA) FOR UP TO 30 DOSES., DISP: 30 TABLET, RFL: 3
     Route: 048
  11. Mepronal [Concomitant]
     Indication: Product used for unknown indication
     Dosage: 10 ML, QD (1,500 MG BY MOUTH 1 TIME EACH DAY, DISP: 500 ML, RFL: 3)
     Route: 048
  12. OSCAL [Concomitant]
     Active Substance: CALCIUM CARBONATE
     Indication: Product used for unknown indication
     Dosage: 2 DOSAGE FORM (1,000 MG), QD (DISP: 60 TABLET, RFL: 1)
     Route: 048
  13. VISINE CONTACT LENS [Concomitant]
     Indication: Product used for unknown indication
     Dosage: 1 DRP, QD (AFFECTED EYE(S)1 TIME EACH DAY IF NEEDED., DISP: , RFL)
     Route: 065
  14. VITAMIN D3 [Concomitant]
     Active Substance: CHOLECALCIFEROL
     Indication: Product used for unknown indication
     Dosage: UNK, QD (TAKE 1,000 UNITS BY MOUTH)
     Route: 048
  15. ZOVIRAX [Concomitant]
     Active Substance: ACYCLOVIR
     Indication: Product used for unknown indication
     Dosage: 800 MG (BY MOUTH, DISP: RFL)
     Route: 048

REACTIONS (7)
  - Death [Fatal]
  - Aplastic anaemia [Fatal]
  - Tenderness [Fatal]
  - Odynophagia [Fatal]
  - Dysphagia [Fatal]
  - Product use in unapproved indication [Fatal]
  - Therapy non-responder [Fatal]
